FAERS Safety Report 4826317-4 (Version None)
Quarter: 2005Q4

REPORT INFORMATION
  Report Type: 
  Country: None (occurrence: None)
  Receive Date: 20051111
  Receipt Date: 20051030
  Transmission Date: 20060501
  Serious: Yes (Other)
  Sender: FDA-Public Use
  Company Number: US-ROCHE-423117

PATIENT
  Age: 45 Year
  Sex: Male

DRUGS (1)
  1. FUZEON [Suspect]
     Indication: DRUG USE FOR UNKNOWN INDICATION
     Route: 058
     Dates: start: 20030115, end: 20050815

REACTIONS (2)
  - CEREBROVASCULAR ACCIDENT [None]
  - INJECTION SITE NODULE [None]
